FAERS Safety Report 7141486-1 (Version None)
Quarter: 2010Q4

REPORT INFORMATION
  Report Type: 
  Country: None (occurrence: None)
  Receive Date: 20101207
  Receipt Date: 20101202
  Transmission Date: 20110411
  Serious: Yes (Death)
  Sender: FDA-Public Use
  Company Number: PHHY2010FR81551

PATIENT
  Sex: Female

DRUGS (5)
  1. ACLASTA [Suspect]
     Indication: OSTEOPOROTIC FRACTURE
     Dosage: 5 MG/100 ML
     Dates: start: 20101115
  2. CAPTOPRIL AND HYDROCHLOROTHIAZIDE [Concomitant]
     Indication: HYPERTENSION
  3. SOTALOL HCL [Concomitant]
     Indication: HYPERTENSION
  4. LIPANOR [Concomitant]
     Indication: DYSLIPIDAEMIA
  5. VITAMIN D [Concomitant]
     Dosage: UNK
     Dates: start: 20100901

REACTIONS (1)
  - DEATH [None]
